FAERS Safety Report 26214376 (Version 1)
Quarter: 2025Q4

REPORT INFORMATION
  Report Type: Spontaneous
  Country: US (occurrence: US)
  Receive Date: 20251230
  Receipt Date: 20251230
  Transmission Date: 20260118
  Serious: Yes (Other)
  Sender: EMPOWER PHARMACY
  Company Number: US-Empower Pharmacy-2191589

PATIENT
  Age: 75 Year
  Sex: Male
  Weight: 103.18 kg

DRUGS (1)
  1. CYANOCOBALAMIN\SEMAGLUTIDE [Suspect]
     Active Substance: CYANOCOBALAMIN\SEMAGLUTIDE
     Indication: Weight control
     Dates: start: 20251219, end: 20251219

REACTIONS (2)
  - Blood pressure increased [Recovered/Resolved]
  - Abdominal discomfort [Recovered/Resolved]
